FAERS Safety Report 9580203 (Version 1)
Quarter: 2013Q3

REPORT INFORMATION
  Report Type: Spontaneous
  Country: US (occurrence: None)
  Receive Date: 20130916
  Receipt Date: 20130916
  Transmission Date: 20140515
  Serious: Yes (Other)
  Sender: FDA-Public Use
  Company Number: JPI-P-029791

PATIENT
  Age: 17 Year
  Sex: Female
  Weight: 50.8 kg

DRUGS (2)
  1. XYREM [Suspect]
     Indication: CATAPLEXY
     Dosage: (UNKNOWN, 9 GRAMS TOTAL DAILY DOSE), ORAL
     Route: 048
     Dates: start: 201202
  2. TRAVOPROST [Concomitant]

REACTIONS (8)
  - Weight decreased [None]
  - Tremor [None]
  - Raynaud^s phenomenon [None]
  - Condition aggravated [None]
  - Skin ulcer [None]
  - Nausea [None]
  - Narcolepsy [None]
  - Hyperhidrosis [None]
